FAERS Safety Report 12714260 (Version 1)
Quarter: 2016Q3

REPORT INFORMATION
  Report Type: Spontaneous
  Country: US (occurrence: US)
  Receive Date: 20160905
  Receipt Date: 20160905
  Transmission Date: 20161109
  Serious: No
  Sender: FDA-Public Use
  Company Number: US-JAZZ-2016-US-008709

PATIENT
  Sex: Female

DRUGS (54)
  1. LOVASTATIN. [Concomitant]
     Active Substance: LOVASTATIN
  2. ACIPHEX [Concomitant]
     Active Substance: RABEPRAZOLE SODIUM
  3. LYCOPENE [Concomitant]
     Active Substance: LYCOPENE
  4. MILK THISTLE [Concomitant]
     Active Substance: MILK THISTLE
  5. OMEGA 3 FISH OIL [Concomitant]
     Active Substance: FISH OIL\OMEGA-3 FATTY ACIDS
  6. VITAMIN B12 [Concomitant]
     Active Substance: CYANOCOBALAMIN
  7. VITAMIN B6 [Concomitant]
     Active Substance: PYRIDOXINE HYDROCHLORIDE
  8. DIGESTIVE ENZYMES [Concomitant]
     Active Substance: UNSPECIFIED INGREDIENT
  9. EVENING PRIMROSE OIL [Concomitant]
     Active Substance: EVENING PRIMROSE OIL
  10. FOLIC ACID. [Concomitant]
     Active Substance: FOLIC ACID
  11. GLIMEPIRIDE. [Concomitant]
     Active Substance: GLIMEPIRIDE
  12. KLONOPIN [Concomitant]
     Active Substance: CLONAZEPAM
  13. LANTUS [Concomitant]
     Active Substance: INSULIN GLARGINE
  14. PROVIGIL [Concomitant]
     Active Substance: MODAFINIL
  15. ZYRTEC [Concomitant]
     Active Substance: CETIRIZINE HYDROCHLORIDE
  16. ASACOL [Concomitant]
     Active Substance: MESALAMINE
  17. COQ10 [Concomitant]
     Active Substance: UBIDECARENONE
  18. DIVALPROEX SODIUM. [Concomitant]
     Active Substance: DIVALPROEX SODIUM
  19. LIPITOR [Concomitant]
     Active Substance: ATORVASTATIN CALCIUM
  20. NYSTATIN/TRIAMCINOLONE [Concomitant]
     Active Substance: NYSTATIN\TRIAMCINOLONE
  21. VITAMIN A [Concomitant]
     Active Substance: VITAMIN A
  22. ACTOPLUS MET [Concomitant]
     Active Substance: METFORMIN HYDROCHLORIDE\PIOGLITAZONE HYDROCHLORIDE
  23. ALBUTEROL SULFATE. [Concomitant]
     Active Substance: ALBUTEROL SULFATE
  24. ALFALFA [Concomitant]
     Active Substance: ALFALFA
  25. FLUTICASONE PROPIONATE. [Concomitant]
     Active Substance: FLUTICASONE PROPIONATE
  26. NAMENDA [Concomitant]
     Active Substance: MEMANTINE HYDROCHLORIDE
  27. NIACIN FLUSH FREE [Concomitant]
  28. PROAIR HFA [Concomitant]
     Active Substance: ALBUTEROL SULFATE
  29. XYREM [Suspect]
     Active Substance: SODIUM OXYBATE
     Indication: NARCOLEPSY
     Dosage: 2.25 G, BID
     Route: 048
     Dates: start: 200601, end: 2006
  30. ASPIRIN. [Concomitant]
     Active Substance: ASPIRIN
  31. BENZONATATE. [Concomitant]
     Active Substance: BENZONATATE
  32. FLAXSEED [Concomitant]
     Active Substance: FLAX SEED
  33. JANUMET [Concomitant]
     Active Substance: METFORMIN HYDROCHLORIDE\SITAGLIPTIN PHOSPHATE
  34. ASMANEX [Concomitant]
     Active Substance: MOMETASONE FUROATE
  35. BILBERRY EXTRACT [Concomitant]
  36. CHROMIUM [Concomitant]
     Active Substance: CHROMIC CHLORIDE\CHROMIUM
  37. DOXYCYCLINE. [Concomitant]
     Active Substance: DOXYCYCLINE
  38. LEXAPRO [Concomitant]
     Active Substance: ESCITALOPRAM OXALATE
  39. LOTRISONE [Concomitant]
     Active Substance: BETAMETHASONE DIPROPIONATE\CLOTRIMAZOLE
  40. XYREM [Suspect]
     Active Substance: SODIUM OXYBATE
     Indication: CATAPLEXY
     Dosage: 3 G, BID
     Route: 048
     Dates: start: 200905, end: 2011
  41. XYREM [Suspect]
     Active Substance: SODIUM OXYBATE
     Dosage: 3 G, BID
     Route: 048
     Dates: start: 201112, end: 2014
  42. AMLODIPINE BESYLATE. [Concomitant]
     Active Substance: AMLODIPINE BESYLATE
  43. EXELON [Concomitant]
     Active Substance: RIVASTIGMINE TARTRATE
  44. LIALDA [Concomitant]
     Active Substance: MESALAMINE
  45. MULTIVITAMIN WITH MINERALS [Concomitant]
     Active Substance: MINERALS\VITAMINS
  46. NUVIGIL [Concomitant]
     Active Substance: ARMODAFINIL
  47. PROTONIX [Concomitant]
     Active Substance: PANTOPRAZOLE SODIUM
  48. RESTASIS [Concomitant]
     Active Substance: CYCLOSPORINE
  49. SIMVASTATIN. [Concomitant]
     Active Substance: SIMVASTATIN
  50. LOSARTAN POTASSIUM. [Concomitant]
     Active Substance: LOSARTAN POTASSIUM
  51. CYMBALTA [Concomitant]
     Active Substance: DULOXETINE HYDROCHLORIDE
  52. ESTRACE [Concomitant]
     Active Substance: ESTRADIOL
  53. LISINOPRIL. [Concomitant]
     Active Substance: LISINOPRIL
  54. OXYGEN. [Concomitant]
     Active Substance: OXYGEN

REACTIONS (1)
  - Cardiac murmur [Not Recovered/Not Resolved]
